FAERS Safety Report 21888455 (Version 2)
Quarter: 2023Q1

REPORT INFORMATION
  Report Type: Report from Study
  Country: JP (occurrence: JP)
  Receive Date: 20230120
  Receipt Date: 20230123
  Transmission Date: 20230417
  Serious: Yes (Other)
  Sender: FDA-Public Use
  Company Number: JP-NBI-S202100043

PATIENT

DRUGS (4)
  1. GILOTRIF [Suspect]
     Active Substance: AFATINIB
     Indication: EGFR gene mutation
     Route: 048
  2. GILOTRIF [Suspect]
     Active Substance: AFATINIB
     Indication: Non-small cell lung cancer
  3. TAGRISSO [Concomitant]
     Active Substance: OSIMERTINIB
     Indication: EGFR gene mutation
     Route: 065
  4. TAGRISSO [Concomitant]
     Active Substance: OSIMERTINIB
     Indication: Non-small cell lung cancer

REACTIONS (4)
  - Malignant neoplasm progression [Unknown]
  - Nausea [Unknown]
  - Gene mutation [Unknown]
  - HER2 gene amplification [Unknown]
